FAERS Safety Report 6983746-0 (Version None)
Quarter: 2010Q3

REPORT INFORMATION
  Report Type: 
  Country: None (occurrence: None)
  Receive Date: 20100914
  Receipt Date: 20051125
  Transmission Date: 20110219
  Serious: Yes (Hospitalization)
  Sender: FDA-Public Use
  Company Number: US-WYE-H07162208

PATIENT
  Age: 73 Year
  Sex: Male
  Weight: 83.99 kg

DRUGS (2)
  1. ADVIL LIQUI-GELS [Suspect]
     Indication: ARTHRITIS
     Dosage: VARIED-USUALLY 2 CAPLETS PER DAY
     Route: 048
  2. ALKA-SELTZER [Suspect]
     Indication: PRODUCT USED FOR UNKNOWN INDICATION
     Dosage: UNKNOWN
     Route: 048

REACTIONS (4)
  - ANAEMIA [None]
  - DIZZINESS [None]
  - HAEMORRHAGE [None]
  - NAUSEA [None]
